FAERS Safety Report 16706816 (Version 2)
Quarter: 2019Q3

REPORT INFORMATION
  Report Type: Spontaneous
  Country: DK (occurrence: DK)
  Receive Date: 20190815
  Receipt Date: 20190920
  Transmission Date: 20191004
  Serious: Yes (Other)
  Sender: FDA-Public Use
  Company Number: DK-AMGEN-DNKSP2019131224

PATIENT
  Sex: Female

DRUGS (4)
  1. CERAZETTE [DESOGESTREL] [Interacting]
     Active Substance: DESOGESTREL
     Indication: CONTRACEPTION
     Dosage: UNK
     Route: 065
  2. AIMOVIG [Interacting]
     Active Substance: ERENUMAB-AOOE
     Dosage: UNK, Q4WK
     Route: 065
     Dates: start: 20190904
  3. AIMOVIG [Interacting]
     Active Substance: ERENUMAB-AOOE
     Dosage: UNK UNK, Q4WK
     Route: 065
     Dates: start: 20190807
  4. AIMOVIG [Suspect]
     Active Substance: ERENUMAB-AOOE
     Indication: MIGRAINE
     Dosage: UNK, Q4WK
     Route: 065
     Dates: start: 20190710

REACTIONS (3)
  - Drug ineffective [Not Recovered/Not Resolved]
  - Drug interaction [Unknown]
  - Menstruation normal [Unknown]

NARRATIVE: CASE EVENT DATE: 20190714
